FAERS Safety Report 9098714 (Version 2)
Quarter: 2013Q2

REPORT INFORMATION
  Report Type: Spontaneous
  Country: US (occurrence: US)
  Receive Date: 20130213
  Receipt Date: 20130416
  Transmission Date: 20140414
  Serious: Yes (Other)
  Sender: FDA-Public Use
  Company Number: US-PFIZER INC-2013056091

PATIENT
  Sex: Female
  Weight: 74.83 kg

DRUGS (4)
  1. LIPITOR [Suspect]
     Dosage: UNK
     Dates: start: 2007, end: 2010
  2. TOPAMAX [Concomitant]
  3. WARFARIN [Concomitant]
     Indication: BLOOD DISORDER
  4. MULTIVITAMINS [Concomitant]

REACTIONS (2)
  - Breast cancer [Unknown]
  - Myalgia [Unknown]
